FAERS Safety Report 7203656-3 (Version None)
Quarter: 2010Q4

REPORT INFORMATION
  Report Type: 
  Country: None (occurrence: None)
  Receive Date: 20101228
  Receipt Date: 20101228
  Transmission Date: 20110411
  Serious: No
  Sender: FDA-Public Use
  Company Number: None

PATIENT
  Age: 24 Year
  Sex: Male
  Weight: 92.9874 kg

DRUGS (2)
  1. LEVAQUIN [Suspect]
     Indication: PROSTATITIS
     Dosage: 250 MG 2X DAILY FOR 7 DAY PO ; 750 MG 1 TIME PO
     Route: 048
     Dates: start: 20100401, end: 20100408
  2. LEVAQUIN [Suspect]
     Indication: PROSTATITIS
     Dosage: 250 MG 2X DAILY FOR 7 DAY PO ; 750 MG 1 TIME PO
     Route: 048
     Dates: start: 20101123, end: 20101124

REACTIONS (1)
  - TENDON DISORDER [None]
